FAERS Safety Report 24314167 (Version 1)
Quarter: 2024Q3

REPORT INFORMATION
  Report Type: Spontaneous
  Country: JP (occurrence: JP)
  Receive Date: 20240912
  Receipt Date: 20240912
  Transmission Date: 20241017
  Serious: Yes (Other)
  Sender: REGENERON
  Company Number: JP-BAYER-2024A129544

PATIENT
  Age: 70 Year
  Sex: Female

DRUGS (1)
  1. EYLEA [Suspect]
     Active Substance: AFLIBERCEPT
     Indication: Retinal vein occlusion
     Dosage: UNK, SOLUTION FOR INJECTION, 40 MG/ML

REACTIONS (1)
  - Aortic dissection [Recovering/Resolving]
